FAERS Safety Report 20128792 (Version 13)
Quarter: 2022Q3

REPORT INFORMATION
  Report Type: Report from Study
  Country: CN (occurrence: None)
  Receive Date: 20211130
  Receipt Date: 20220906
  Transmission Date: 20221027
  Serious: Yes (Hospitalization)
  Sender: FDA-Public Use
  Company Number: CN-ROCHE-2969118

PATIENT
  Age: 60 Year
  Sex: Female
  Weight: 62 kg

DRUGS (87)
  1. PLACEBO [Suspect]
     Active Substance: UNSPECIFIED INGREDIENT
     Indication: Non-small cell lung cancer stage IV
     Dosage: START DATE OF MOST RECENT DOSE OF STUDY DRUG PRIOR TO SAE: 11/NOV/2021?START DATE OF MOST RECENT DOS
     Route: 042
     Dates: start: 20210824
  2. BEVACIZUMAB [Suspect]
     Active Substance: BEVACIZUMAB
     Indication: Non-small cell lung cancer stage IV
     Dosage: ON 11/NOV/2021 MOST RECENT DOSE OF STUDY DRUG PRIOR TO AE
     Route: 042
     Dates: start: 20210824
  3. CARBOPLATIN [Suspect]
     Active Substance: CARBOPLATIN
     Indication: Non-small cell lung cancer stage IV
     Dosage: ON 12/NOV/2021MOST RECENT DOSE OF STUDY DRUG 400 MG PRIOR TO AE
     Route: 042
     Dates: start: 20210825
  4. PEMETREXED [Suspect]
     Active Substance: PEMETREXED
     Indication: Non-small cell lung cancer stage IV
     Dosage: ON 12/NOV/2021MOST RECENT DOSE OF STUDY DRUG 805 MG PRIOR TO AE
     Route: 042
     Dates: start: 20210825
  5. COMPOUND RESERPINE [Concomitant]
     Indication: Hypertension
     Dates: start: 2021
  6. FLUNARIZINE HYDROCHLORIDE [Concomitant]
     Active Substance: FLUNARIZINE HYDROCHLORIDE
     Indication: Headache
     Dates: start: 2021
  7. ASPIRIN [Concomitant]
     Active Substance: ASPIRIN
     Dates: start: 2021
  8. METFORMIN HYDROCHLORIDE [Concomitant]
     Active Substance: METFORMIN HYDROCHLORIDE
     Dates: start: 2019
  9. PALONOSETRON HYDROCHLORIDE [Concomitant]
     Active Substance: PALONOSETRON HYDROCHLORIDE
     Dates: start: 20210825, end: 20210825
  10. PALONOSETRON HYDROCHLORIDE [Concomitant]
     Active Substance: PALONOSETRON HYDROCHLORIDE
     Dates: start: 20211009, end: 20211009
  11. PALONOSETRON HYDROCHLORIDE [Concomitant]
     Active Substance: PALONOSETRON HYDROCHLORIDE
     Dates: start: 20211112, end: 20211112
  12. PALONOSETRON HYDROCHLORIDE [Concomitant]
     Active Substance: PALONOSETRON HYDROCHLORIDE
     Dates: start: 20211223, end: 20211223
  13. DEXAMETHASONE ACETATE [Concomitant]
     Active Substance: DEXAMETHASONE ACETATE
     Route: 048
     Dates: start: 20210825, end: 20210825
  14. DEXAMETHASONE ACETATE [Concomitant]
     Active Substance: DEXAMETHASONE ACETATE
     Route: 048
     Dates: start: 20210916, end: 20210918
  15. DEXAMETHASONE ACETATE [Concomitant]
     Active Substance: DEXAMETHASONE ACETATE
     Route: 048
     Dates: start: 20211008, end: 20211011
  16. DEXAMETHASONE ACETATE [Concomitant]
     Active Substance: DEXAMETHASONE ACETATE
     Route: 048
     Dates: start: 20211111, end: 20211113
  17. DEXAMETHASONE ACETATE [Concomitant]
     Active Substance: DEXAMETHASONE ACETATE
     Route: 048
     Dates: start: 20211222, end: 20211224
  18. APREPITANT [Concomitant]
     Active Substance: APREPITANT
     Indication: Prophylaxis of nausea and vomiting
     Route: 048
     Dates: start: 20210824, end: 20210826
  19. APREPITANT [Concomitant]
     Active Substance: APREPITANT
     Indication: Prophylaxis of nausea and vomiting
     Dates: start: 20211009, end: 20211011
  20. INSULIN NOS [Concomitant]
     Active Substance: INSULIN NOS
     Dates: start: 20210825, end: 20210825
  21. ONDANSETRON HYDROCHLORIDE [Concomitant]
     Active Substance: ONDANSETRON HYDROCHLORIDE
     Indication: Nausea
     Dates: start: 20210828, end: 20210830
  22. ONDANSETRON HYDROCHLORIDE [Concomitant]
     Active Substance: ONDANSETRON HYDROCHLORIDE
     Dates: start: 20211203, end: 20211209
  23. ONDANSETRON HYDROCHLORIDE [Concomitant]
     Active Substance: ONDANSETRON HYDROCHLORIDE
     Dates: start: 20210917, end: 20211008
  24. MOLGRAMOSTIM [Concomitant]
     Active Substance: MOLGRAMOSTIM
     Indication: White blood cell count decreased
     Dates: start: 20210808, end: 20210810
  25. MOLGRAMOSTIM [Concomitant]
     Active Substance: MOLGRAMOSTIM
     Indication: Neutrophil count decreased
     Dates: start: 20210911, end: 20210912
  26. MOLGRAMOSTIM [Concomitant]
     Active Substance: MOLGRAMOSTIM
     Dates: start: 20211124, end: 20211125
  27. MOLGRAMOSTIM [Concomitant]
     Active Substance: MOLGRAMOSTIM
     Dates: start: 20211129, end: 20211129
  28. MOLGRAMOSTIM [Concomitant]
     Active Substance: MOLGRAMOSTIM
     Dates: start: 20211214, end: 20211214
  29. MOLGRAMOSTIM [Concomitant]
     Active Substance: MOLGRAMOSTIM
     Dates: start: 20220102, end: 20220104
  30. ALBUMIN HUMAN [Concomitant]
     Active Substance: ALBUMIN HUMAN
     Indication: Hypoproteinaemia
     Dates: start: 20210915, end: 20210918
  31. ALBUMIN HUMAN [Concomitant]
     Active Substance: ALBUMIN HUMAN
     Dates: start: 20211210, end: 20211211
  32. ALBUMIN HUMAN [Concomitant]
     Active Substance: ALBUMIN HUMAN
     Dates: start: 20211213, end: 20211221
  33. GEFITINIB [Concomitant]
     Active Substance: GEFITINIB
     Dates: start: 20200807, end: 20210812
  34. VITAMIN B6 [Concomitant]
     Active Substance: PYRIDOXINE HYDROCHLORIDE
     Dates: start: 20210825, end: 20210826
  35. VITAMIN B6 [Concomitant]
     Active Substance: PYRIDOXINE HYDROCHLORIDE
     Dates: start: 20211009, end: 20211009
  36. VITAMIN B6 [Concomitant]
     Active Substance: PYRIDOXINE HYDROCHLORIDE
     Dates: start: 20211112, end: 20211114
  37. VITAMIN B6 [Concomitant]
     Active Substance: PYRIDOXINE HYDROCHLORIDE
     Dates: start: 20211126, end: 20211212
  38. VITAMIN B6 [Concomitant]
     Active Substance: PYRIDOXINE HYDROCHLORIDE
     Dates: start: 20211221, end: 20211224
  39. HYDROTALCITE [Concomitant]
     Active Substance: HYDROTALCITE
     Dates: start: 20210916, end: 20210916
  40. HYDROTALCITE [Concomitant]
     Active Substance: HYDROTALCITE
     Dates: start: 20210918, end: 20211008
  41. OMEPRAZOLE [Concomitant]
     Active Substance: OMEPRAZOLE
     Dates: start: 20210915, end: 20210918
  42. OMEPRAZOLE [Concomitant]
     Active Substance: OMEPRAZOLE
     Dates: start: 20210824
  43. OMEPRAZOLE [Concomitant]
     Active Substance: OMEPRAZOLE
     Dates: start: 20211008, end: 20211011
  44. OMEPRAZOLE [Concomitant]
     Active Substance: OMEPRAZOLE
     Dates: start: 20211011, end: 20211030
  45. OMEPRAZOLE [Concomitant]
     Active Substance: OMEPRAZOLE
     Dates: start: 20211111, end: 20211115
  46. BROMHEXINE HYDROCHLORIDE [Concomitant]
     Active Substance: BROMHEXINE HYDROCHLORIDE
     Dates: start: 20210915, end: 20210918
  47. BROMHEXINE HYDROCHLORIDE [Concomitant]
     Active Substance: BROMHEXINE HYDROCHLORIDE
     Dates: start: 20211008, end: 20211011
  48. BROMHEXINE HYDROCHLORIDE [Concomitant]
     Active Substance: BROMHEXINE HYDROCHLORIDE
     Dates: start: 20211111, end: 20211115
  49. AMBROXOL HYDROCHLORIDE [Concomitant]
     Active Substance: AMBROXOL HYDROCHLORIDE
     Dates: start: 20210915, end: 20210918
  50. AMBROXOL HYDROCHLORIDE [Concomitant]
     Active Substance: AMBROXOL HYDROCHLORIDE
     Dates: start: 20211008, end: 20211011
  51. AMBROXOL HYDROCHLORIDE [Concomitant]
     Active Substance: AMBROXOL HYDROCHLORIDE
     Dates: start: 20211111, end: 20211115
  52. LACTULOSE [Concomitant]
     Active Substance: LACTULOSE
     Route: 048
     Dates: start: 20210928, end: 20210929
  53. OPRELVEKIN [Concomitant]
     Active Substance: OPRELVEKIN
     Indication: Platelet count decreased
     Dates: start: 20210928, end: 20210929
  54. OPRELVEKIN [Concomitant]
     Active Substance: OPRELVEKIN
     Dates: start: 20211003, end: 20211005
  55. CLIVARIN [Concomitant]
     Dates: start: 20210919, end: 20210922
  56. CLIVARIN [Concomitant]
     Dates: start: 20210924, end: 20210924
  57. CLIVARIN [Concomitant]
     Dates: start: 20210926, end: 20210930
  58. CLIVARIN [Concomitant]
     Dates: start: 20211009, end: 20211011
  59. DOXOFYLLINE [Concomitant]
     Active Substance: DOXOFYLLINE
     Dates: start: 20211008, end: 20211011
  60. DOXOFYLLINE [Concomitant]
     Active Substance: DOXOFYLLINE
     Dates: start: 20211111, end: 20211115
  61. ALBUMIN HUMAN [Concomitant]
     Active Substance: ALBUMIN HUMAN
     Indication: Hypoalbuminaemia
     Dates: start: 20211009, end: 20211011
  62. ALBUMIN HUMAN [Concomitant]
     Active Substance: ALBUMIN HUMAN
     Dates: start: 20211213, end: 20211221
  63. CODEINE PHOSPHATE [Concomitant]
     Active Substance: CODEINE PHOSPHATE
     Dates: start: 20211011, end: 20211015
  64. CODEINE PHOSPHATE [Concomitant]
     Active Substance: CODEINE PHOSPHATE
     Dates: start: 20211120, end: 20211212
  65. APREPITANT [Concomitant]
     Active Substance: APREPITANT
     Dates: start: 20211112, end: 20211115
  66. FUROSEMIDE [Concomitant]
     Active Substance: FUROSEMIDE
     Indication: Polyuria
     Dates: start: 20211111, end: 20211111
  67. FUROSEMIDE [Concomitant]
     Active Substance: FUROSEMIDE
     Dates: start: 20211204, end: 20211212
  68. FUROSEMIDE [Concomitant]
     Active Substance: FUROSEMIDE
     Dates: start: 20211213, end: 20211221
  69. OMEPRAZOLE [Concomitant]
     Active Substance: OMEPRAZOLE
     Dates: start: 20211011, end: 20211030
  70. OMEPRAZOLE [Concomitant]
     Active Substance: OMEPRAZOLE
     Dates: start: 20211111, end: 20211118
  71. LEUCOGEN TABLETS [Concomitant]
     Dates: start: 20211111, end: 20211120
  72. LEUCOGEN TABLETS [Concomitant]
     Dates: start: 20211121, end: 20211126
  73. CANDESARTAN CILEXETIL [Concomitant]
     Active Substance: CANDESARTAN CILEXETIL
     Indication: Hypertension
     Dates: start: 20211126, end: 20211212
  74. METOPROLOL TARTRATE [Concomitant]
     Active Substance: METOPROLOL TARTRATE
     Indication: Hypertension
     Dates: start: 20211126, end: 20211212
  75. VITAMIN C [Concomitant]
     Active Substance: ASCORBIC ACID
     Dates: start: 20211126, end: 20211212
  76. POTASSIUM CHLORIDE [Concomitant]
     Active Substance: POTASSIUM CHLORIDE
     Dates: start: 20211126, end: 20211209
  77. POTASSIUM CHLORIDE [Concomitant]
     Active Substance: POTASSIUM CHLORIDE
     Dates: start: 20211221, end: 20211224
  78. POTASSIUM CHLORIDE [Concomitant]
     Active Substance: POTASSIUM CHLORIDE
     Dates: start: 20211221, end: 20211224
  79. POTASSIUM CHLORIDE [Concomitant]
     Active Substance: POTASSIUM CHLORIDE
     Dates: start: 20211225, end: 20220110
  80. DOMPERIDONE [Concomitant]
     Active Substance: DOMPERIDONE
     Dates: start: 20211126, end: 20211212
  81. FAMOTIDINE [Concomitant]
     Active Substance: FAMOTIDINE
     Dates: start: 20211206, end: 20211212
  82. AMINO ACIDS, SOURCE UNSPECIFIED [Concomitant]
     Active Substance: AMINO ACIDS, SOURCE UNSPECIFIED
     Dates: start: 20211213, end: 20211224
  83. INOSINE [Concomitant]
     Active Substance: INOSINE
     Dates: start: 20211213, end: 20211221
  84. CLIVARIN [Concomitant]
     Dates: start: 20211214, end: 20211224
  85. OSIMERTINIB MESYLATE [Concomitant]
     Active Substance: OSIMERTINIB MESYLATE
     Dates: start: 2022
  86. OMEPRAZOLE [Concomitant]
     Active Substance: OMEPRAZOLE
     Dates: start: 20210919, end: 20210921
  87. SHENG XUE BAO HE JI [Concomitant]
     Dates: start: 20211111, end: 20211115

REACTIONS (2)
  - Platelet count decreased [Recovered/Resolved]
  - Anaemia [Recovered/Resolved]

NARRATIVE: CASE EVENT DATE: 20210905
